FAERS Safety Report 8129467-2 (Version None)
Quarter: 2012Q1

REPORT INFORMATION
  Report Type: 
  Country: None (occurrence: None)
  Receive Date: 20120210
  Receipt Date: 20120208
  Transmission Date: 20120608
  Serious: No
  Sender: FDA-Public Use
  Company Number: US-TEVA-321784USA

PATIENT
  Sex: Female

DRUGS (5)
  1. THYROID [Concomitant]
     Indication: HORMONE THERAPY
     Route: 048
  2. NITROFURANTOIN [Concomitant]
     Route: 048
  3. COPAXONE [Suspect]
     Indication: MULTIPLE SCLEROSIS
     Dosage: 20 MILLIGRAM;
     Route: 058
     Dates: start: 20071201
  4. OXYBUTYNIN [Concomitant]
     Indication: BLADDER DISORDER
     Route: 048
  5. WARFARIN SODIUM [Concomitant]
     Indication: ANTICOAGULANT THERAPY
     Route: 048

REACTIONS (2)
  - PRURITUS [None]
  - URTICARIA [None]
